FAERS Safety Report 4327772-9 (Version None)
Quarter: 2004Q1

REPORT INFORMATION
  Report Type: 
  Country: None (occurrence: None)
  Receive Date: 20040325
  Receipt Date: 20040315
  Transmission Date: 20041129
  Serious: Yes (Death)
  Sender: FDA-Public Use
  Company Number: US-JNJFOC-20040205067

PATIENT
  Age: 83 Year
  Sex: Female

DRUGS (1)
  1. DURAGESIC [Suspect]
     Indication: PAIN
     Dosage: 300 UG/HR, 1 IN 72 HOUR, TRANDERMAL
     Route: 062
     Dates: start: 20030802, end: 20031218

REACTIONS (2)
  - COLON CANCER METASTATIC [None]
  - MALIGNANT NEOPLASM PROGRESSION [None]
